FAERS Safety Report 13737211 (Version 1)
Quarter: 2017Q3

REPORT INFORMATION
  Report Type: Spontaneous
  Country: US (occurrence: US)
  Receive Date: 20170710
  Receipt Date: 20170710
  Transmission Date: 20171127
  Serious: Yes (Disabling)
  Sender: FDA-Public Use
  Company Number: US-SAOL THERAPEUTICS-2016SAO00027

PATIENT
  Sex: Female

DRUGS (5)
  1. COMPOUNDED BACLOFEN [Suspect]
     Active Substance: BACLOFEN
     Indication: PARAPARESIS
     Dosage: 1364.9 ?G, \DAY
     Dates: start: 20160616
  2. COMPOUNDED BACLOFEN [Suspect]
     Active Substance: BACLOFEN
     Dosage: 1274.3 ?G, \DAY
     Dates: start: 20160610, end: 20160616
  3. COMPOUNDED BACLOFEN [Suspect]
     Active Substance: BACLOFEN
     Indication: PARAPARESIS
     Dosage: 1154.7 UNK, UNK
     Dates: start: 20160602, end: 20160610
  4. BACLOFEN (ORAL) [Concomitant]
     Active Substance: BACLOFEN
     Dosage: 20 MG, 5X/DAY
     Route: 048
  5. DANTRIUM [Concomitant]
     Active Substance: DANTROLENE SODIUM
     Dosage: UNK
     Dates: end: 20160511

REACTIONS (2)
  - Gait disturbance [Not Recovered/Not Resolved]
  - Muscle spasticity [Not Recovered/Not Resolved]

NARRATIVE: CASE EVENT DATE: 2016
